FAERS Safety Report 16877704 (Version 3)
Quarter: 2019Q4

REPORT INFORMATION
  Report Type: Report from Study
  Country: JP (occurrence: JP)
  Receive Date: 20191002
  Receipt Date: 20191101
  Transmission Date: 20200122
  Serious: Yes (Hospitalization)
  Sender: FDA-Public Use
  Company Number: JP-CELGENEUS-JPN-20190908375

PATIENT
  Age: 34 Year
  Sex: Female
  Weight: 63 kg

DRUGS (5)
  1. HYDROCORTISONE BUTYRATE. [Concomitant]
     Active Substance: HYDROCORTISONE BUTYRATE
     Indication: PSORIASIS
     Dosage: 0.25 G
     Route: 061
     Dates: start: 20190710
  2. DOVOBET GEL [Concomitant]
     Indication: PSORIASIS
     Dosage: 1.0 G
     Route: 061
     Dates: start: 20190814
  3. CC-10004 [Suspect]
     Active Substance: APREMILAST
     Indication: PSORIASIS
     Route: 048
     Dates: start: 20190919, end: 20190923
  4. LOXOPROFEN SODIUM HYDRATE [Concomitant]
     Active Substance: LOXOPROFEN SODIUM DIHYDRATE
     Indication: DYSMENORRHOEA
     Dosage: 60 MG X PRN
     Route: 048
  5. DOVOBET OINTMENT [Concomitant]
     Indication: PSORIASIS
     Dosage: 0.75 G
     Route: 061
     Dates: start: 20190710

REACTIONS (1)
  - Blood creatine phosphokinase increased [Recovered/Resolved]

NARRATIVE: CASE EVENT DATE: 20190924
